FAERS Safety Report 5499210-4 (Version None)
Quarter: 2007Q4

REPORT INFORMATION
  Report Type: 
  Country: None (occurrence: None)
  Receive Date: 20071026
  Receipt Date: 20071015
  Transmission Date: 20080405
  Serious: Yes (Death, Hospitalization)
  Sender: FDA-Public Use
  Company Number: FR-AVENTIS-200713282FR

PATIENT
  Age: 86 Year
  Sex: Female

DRUGS (6)
  1. FLAGYL [Suspect]
     Route: 048
     Dates: start: 20070226, end: 20070312
  2. CORDARONE [Suspect]
     Indication: ATRIAL FIBRILLATION
     Route: 048
     Dates: end: 20070318
  3. COUMADIN [Suspect]
     Route: 048
     Dates: start: 19970101, end: 20070304
  4. INNOHEP                            /01707902/ [Suspect]
     Route: 058
     Dates: start: 20070309, end: 20070315
  5. LEVOTHYROX [Suspect]
     Route: 048
     Dates: end: 20070321
  6. ROCEPHIN [Suspect]
     Route: 042
     Dates: start: 20070305, end: 20070311

REACTIONS (2)
  - HAEMATURIA [None]
  - NEOPLASM PROGRESSION [None]
